FAERS Safety Report 8778418 (Version 1)
Quarter: 2012Q4

REPORT INFORMATION
  Report Type: 
  Country: DK (occurrence: DK)
  Receive Date: 20120912
  Receipt Date: 20120912
  Transmission Date: 20130627
  Serious: Yes (Life-Threatening, Hospitalization)
  Sender: FDA-Public Use
  Company Number: DK-ROCHE-1067989

PATIENT
  Sex: Female

DRUGS (5)
  1. AVASTIN [Suspect]
     Indication: NON-SMALL CELL LUNG CANCER
     Route: 042
     Dates: start: 20120307, end: 20120307
  2. CARBOPLATIN [Suspect]
     Indication: NON-SMALL CELL LUNG CANCER
     Route: 042
  3. VINORELBINE [Suspect]
     Indication: NON-SMALL CELL LUNG CANCER
     Route: 048
  4. PREDNISOLONE [Concomitant]
     Indication: NAUSEA
     Route: 048
     Dates: start: 20120307
  5. EMPERAL [Concomitant]

REACTIONS (9)
  - Streptococcal infection [Recovered/Resolved]
  - Fall [Not Recovered/Not Resolved]
  - Wound [Unknown]
  - Impaired healing [Unknown]
  - Thermal burn [Recovered/Resolved with Sequelae]
  - Sepsis [Unknown]
  - Wound necrosis [Not Recovered/Not Resolved]
  - Limb injury [Unknown]
  - Skin graft [Unknown]
